FAERS Safety Report 5259619-0 (Version None)
Quarter: 2007Q1

REPORT INFORMATION
  Report Type: 
  Country: None (occurrence: None)
  Receive Date: 20070307
  Receipt Date: 20070307
  Transmission Date: 20070707
  Serious: Yes (Hospitalization)
  Sender: FDA-Public Use
  Company Number: None

PATIENT
  Age: 35 Day
  Sex: Female
  Weight: 2.29 kg

DRUGS (1)
  1. OCTREOTIDE ACETATE [Suspect]
     Indication: HYPERINSULINAEMIA
     Dosage: 40 MCG/KG/DAY

REACTIONS (2)
  - BILE DUCT STENOSIS [None]
  - CHOLELITHIASIS [None]
